FAERS Safety Report 7569422-4 (Version None)
Quarter: 2011Q2

REPORT INFORMATION
  Report Type: 
  Country: None (occurrence: None)
  Receive Date: 20110624
  Receipt Date: 20110621
  Transmission Date: 20111010
  Serious: Yes (Other)
  Sender: FDA-Public Use
  Company Number: US-BRISTOL-MYERS SQUIBB COMPANY-15848468

PATIENT
  Age: 73 Year
  Sex: Male

DRUGS (1)
  1. METFORMIN HCL [Suspect]

REACTIONS (1)
  - RENAL DISORDER [None]
